FAERS Safety Report 7151291-8 (Version None)
Quarter: 2010Q4

REPORT INFORMATION
  Report Type: 
  Country: None (occurrence: None)
  Receive Date: 20101210
  Receipt Date: 20101209
  Transmission Date: 20110411
  Serious: Yes (Death)
  Sender: FDA-Public Use
  Company Number: CZ-ABBOTT-10P-217-0689445-00

PATIENT
  Sex: Male

DRUGS (7)
  1. HUMIRA [Suspect]
     Indication: ANKYLOSING SPONDYLITIS
     Route: 058
     Dates: start: 20100812, end: 20101011
  2. MEDROL [Concomitant]
     Indication: ANKYLOSING SPONDYLITIS
     Route: 048
  3. SULFASALAZINE [Concomitant]
     Indication: ANKYLOSING SPONDYLITIS
     Dosage: 2 IN 1 DAY; 1000MG-0-500MG PER DAY
  4. OMEPRAZOLE [Concomitant]
     Indication: ULCER
     Route: 048
  5. ATORIS [Concomitant]
     Indication: HYPOLIPIDAEMIA
     Route: 048
  6. ACIDUM RISEDRONICUM(RISENDRONAT) [Concomitant]
     Indication: OSTEOPOROSIS
     Route: 048
  7. COLECALCIFEROL; CA, MG, ZN, MN, CU, B(CALTRATE PLUS) [Concomitant]
     Indication: OSTEOPOROSIS

REACTIONS (3)
  - ALCOHOL POISONING [None]
  - FALL [None]
  - TRAUMATIC BRAIN INJURY [None]
